FAERS Safety Report 9697451 (Version 2)
Quarter: 2013Q4

REPORT INFORMATION
  Report Type: Report from Study
  Country: US (occurrence: US)
  Receive Date: 20131120
  Receipt Date: 20131213
  Transmission Date: 20140711
  Serious: Yes (Hospitalization)
  Sender: FDA-Public Use
  Company Number: PHEH2013US024089

PATIENT
  Age: 12 Year
  Sex: Male
  Weight: 40 kg

DRUGS (10)
  1. TOBI PODHALER [Suspect]
     Indication: CYSTIC FIBROSIS
     Dosage: 112 MG, BID
     Dates: start: 20130815, end: 20130915
  2. PULMOZYME [Concomitant]
     Dosage: 1 DF, QD
  3. FLOVENT [Concomitant]
     Dosage: 2 DF, BID
  4. ALBUTEROL [Concomitant]
     Indication: CYSTIC FIBROSIS
     Dosage: 2 DF, PRN
  5. ZITHROMAX [Concomitant]
     Dosage: 1 DF, 3 TIMES A WEEK
     Route: 048
  6. CREON [Concomitant]
     Dosage: 6 DF, UNK
     Route: 048
  7. ADDERALL [Concomitant]
     Indication: ATTENTION DEFICIT/HYPERACTIVITY DISORDER
     Dosage: 10 MG, QD
     Route: 048
  8. OMEPRAZOLE [Concomitant]
     Dosage: 2 DF, QD
     Route: 048
  9. ANTIBIOTICS [Concomitant]
     Dosage: UNK UKN, UNK
     Route: 042
  10. CETIRIZINE [Concomitant]
     Dosage: 5 MG, QD
     Route: 048

REACTIONS (4)
  - Infective pulmonary exacerbation of cystic fibrosis [Unknown]
  - Nasopharyngitis [Unknown]
  - Cough [Recovered/Resolved]
  - Dysphonia [Recovered/Resolved]
